FAERS Safety Report 15070007 (Version 1)
Quarter: 2018Q2

REPORT INFORMATION
  Report Type: Spontaneous
  Country: JP (occurrence: JP)
  Receive Date: 20180626
  Receipt Date: 20180626
  Transmission Date: 20180711
  Serious: Yes (Other)
  Sender: FDA-Public Use
  Company Number: JP-MYLANLABS-2018M1045556

PATIENT
  Age: 73 Year
  Sex: Male

DRUGS (2)
  1. DOCETAXEL. [Concomitant]
     Active Substance: DOCETAXEL
     Indication: ANGIOSARCOMA METASTATIC
     Dosage: WEEKLY IV DOCETAXEL 25 MG/M2 ON DAYS 1, 8 AND 15, FOLLOWED BY 1 WEEK OFF, EACH CYCLE REPEATED EVE...
     Route: 042
     Dates: start: 201402, end: 201406
  2. PACLITAXEL. [Suspect]
     Active Substance: PACLITAXEL
     Indication: ANGIOSARCOMA METASTATIC
     Dosage: WEEKLY IV PACLITAXEL 65 MG/M2 ON DAYS 1, 8 AND 15, FOLLOWED BY 1 WEEK OFF, EACH CYCLE REPEATED EV...
     Route: 042
     Dates: start: 201306, end: 201309

REACTIONS (2)
  - Interstitial lung disease [Not Recovered/Not Resolved]
  - Pneumothorax [Recovered/Resolved]

NARRATIVE: CASE EVENT DATE: 2013
